FAERS Safety Report 7457080-9 (Version None)
Quarter: 2011Q2

REPORT INFORMATION
  Report Type: 
  Country: None (occurrence: None)
  Receive Date: 20110504
  Receipt Date: 20110420
  Transmission Date: 20111010
  Serious: No
  Sender: FDA-Public Use
  Company Number: US-JNJFOC-20110410634

PATIENT
  Age: 67 Year
  Sex: Female
  Weight: 106.6 kg

DRUGS (3)
  1. LORTAB [Concomitant]
     Route: 065
  2. SKELAXIN [Concomitant]
     Route: 065
  3. DURAGESIC [Suspect]
     Indication: PAIN
     Route: 062

REACTIONS (3)
  - DERMATITIS CONTACT [None]
  - PRODUCT QUALITY ISSUE [None]
  - WRONG TECHNIQUE IN DRUG USAGE PROCESS [None]
